FAERS Safety Report 17528349 (Version 1)
Quarter: 2020Q1

REPORT INFORMATION
  Report Type: Spontaneous
  Country: US (occurrence: US)
  Receive Date: 20200311
  Receipt Date: 20200311
  Transmission Date: 20200409
  Serious: Yes (Other)
  Sender: FDA-Public Use
  Company Number: US-JNJFOC-20200309266

PATIENT
  Sex: Female
  Weight: 62.65 kg

DRUGS (4)
  1. UPTRAVI [Concomitant]
     Active Substance: SELEXIPAG
     Indication: PULMONARY ARTERIAL HYPERTENSION
     Dosage: SHIP  NO: 0314464
     Route: 048
     Dates: start: 20190624, end: 20200213
  2. TRACLEER [Concomitant]
     Active Substance: BOSENTAN
  3. XARELTO [Suspect]
     Active Substance: RIVAROXABAN
     Indication: PULMONARY THROMBOSIS
     Route: 048
  4. REVATIO [Concomitant]
     Active Substance: SILDENAFIL CITRATE

REACTIONS (8)
  - Back pain [Unknown]
  - Pain in extremity [Unknown]
  - Rheumatoid arthritis [Unknown]
  - Dry skin [Unknown]
  - Muscular weakness [Unknown]
  - Gingival bleeding [Unknown]
  - Contusion [Unknown]
  - Gastrooesophageal reflux disease [Unknown]
